FAERS Safety Report 15883339 (Version 1)
Quarter: 2019Q1

REPORT INFORMATION
  Report Type: Spontaneous
  Country: DE (occurrence: DE)
  Receive Date: 20190129
  Receipt Date: 20190129
  Transmission Date: 20190417
  Serious: Yes (Hospitalization)
  Sender: FDA-Public Use
  Company Number: DE-ACCORD-103762

PATIENT
  Age: 62 Year
  Sex: Male
  Weight: 60 kg

DRUGS (12)
  1. FENOTEROL/IPRATROPIUM BROMIDE [Concomitant]
     Dosage: 0.05 / 0.02 MG, REQUIRED, METERED DOSE INHALER
     Route: 055
  2. GLYCOPYRRONIUM BROMIDE/INDACATEROL MALEATE [Concomitant]
     Dosage: 85/43 MICROG, 1-0-0-0, METERED DOSE INHALER
     Route: 055
  3. CARVEDILOL/CARVEDILOL HYDROCHLODRIDE [Concomitant]
     Dosage: 25 MG, 2-0-2-0, TABLETS
     Route: 048
  4. MIRTAZAPINE. [Concomitant]
     Active Substance: MIRTAZAPINE
     Dosage: 15 MG, 0-0-0-1, TABLETS
     Route: 048
  5. ESCITALOPRAM [Concomitant]
     Active Substance: ESCITALOPRAM OXALATE
     Dosage: 15 MG, 1-0-0-0, TABLETS
     Route: 048
  6. MESALAZINE [Concomitant]
     Active Substance: MESALAMINE
     Dosage: 500 MG, 2-2-2-0, TABLETS
     Route: 048
  7. CLOPIDOGREL [Suspect]
     Active Substance: CLOPIDOGREL BISULFATE
     Indication: PRODUCT USED FOR UNKNOWN INDICATION
     Dosage: 75 MG, 1-0-0-0, TABLETS
     Route: 048
  8. ACETYLSALICYLIC ACID [Suspect]
     Active Substance: ASPIRIN
     Indication: PRODUCT USED FOR UNKNOWN INDICATION
     Dosage: 100 MG, 1-0-0-0, TABLETS
     Route: 048
  9. TAMSULOSIN/TAMSULOSIN HYDROCHLORIDE [Concomitant]
     Dosage: 0.4 MG, 1-0-0-0, TABLETS
     Route: 048
  10. OMEPRAZOLE. [Concomitant]
     Active Substance: OMEPRAZOLE
     Dosage: 20 MG, 1-0-0-0, TABLETS
     Route: 048
  11. ATORVASTATIN [Concomitant]
     Active Substance: ATORVASTATIN
     Dosage: 80 MG, 0-0-1-0, TABLETS
     Route: 048
  12. RAMIPRIL. [Concomitant]
     Active Substance: RAMIPRIL
     Dosage: 10 MG, 0-0-1-0, TABLETS
     Route: 048

REACTIONS (6)
  - Gastrointestinal haemorrhage [Unknown]
  - Hypotension [Unknown]
  - Dizziness [Unknown]
  - Haematochezia [Unknown]
  - Anaemia [Unknown]
  - Angina pectoris [Unknown]
